FAERS Safety Report 14137422 (Version 2)
Quarter: 2017Q4

REPORT INFORMATION
  Report Type: Report from Study
  Country: US (occurrence: US)
  Receive Date: 20171027
  Receipt Date: 20171218
  Transmission Date: 20180321
  Serious: Yes (Other)
  Sender: FDA-Public Use
  Company Number: US-PFIZER INC-2017434040

PATIENT
  Age: 52 Year
  Sex: Female

DRUGS (1)
  1. IBRANCE [Suspect]
     Active Substance: PALBOCICLIB
     Indication: BREAST CANCER
     Dosage: 125 MG, DAILY
     Route: 048
     Dates: start: 20170912

REACTIONS (6)
  - Eye haemorrhage [Unknown]
  - Oropharyngeal pain [Unknown]
  - Alopecia [Unknown]
  - Fatigue [Unknown]
  - White blood cell count decreased [Unknown]
  - Headache [Unknown]

NARRATIVE: CASE EVENT DATE: 2017
